FAERS Safety Report 16369233 (Version 1)
Quarter: 2019Q2

REPORT INFORMATION
  Report Type: Spontaneous
  Country: CN (occurrence: CN)
  Receive Date: 20190529
  Receipt Date: 20190529
  Transmission Date: 20190711
  Serious: Yes (Hospitalization, Other)
  Sender: FDA-Public Use
  Company Number: CN-B. BRAUN MEDICAL INC.-2067569

PATIENT
  Age: 75 Year
  Sex: Male

DRUGS (1)
  1. NUTRILIPID I.V. FAT EMULSION [Suspect]
     Active Substance: SOYBEAN OIL
     Indication: NUTRITIONAL SUPPLEMENTATION
     Route: 041
     Dates: start: 20190430, end: 20190501

REACTIONS (6)
  - Hyperhidrosis [None]
  - Tachycardia [None]
  - Hypertension [None]
  - Dyspnoea [None]
  - Chills [None]
  - Oxygen saturation decreased [None]
